FAERS Safety Report 20185969 (Version 2)
Quarter: 2022Q3

REPORT INFORMATION
  Report Type: Report from Study
  Country: US (occurrence: US)
  Receive Date: 20211215
  Receipt Date: 20220819
  Transmission Date: 20221027
  Serious: No
  Sender: FDA-Public Use
  Company Number: US-Ipsen Biopharmaceuticals, Inc.-2021-31357

PATIENT
  Age: 63 Year
  Sex: Female
  Weight: 58.05 kg

DRUGS (2)
  1. DYSPORT [Suspect]
     Active Substance: ABOBOTULINUMTOXINA
     Indication: Torticollis
     Dosage: 1500 IU (500 UNITS TOTAL, BOTH SIDE BACK UNDER SHOULDER BLADES AND BACK OF NECK)
     Route: 030
     Dates: start: 20210621, end: 20210621
  2. DYSPORT [Suspect]
     Active Substance: ABOBOTULINUMTOXINA
     Indication: Torticollis

REACTIONS (4)
  - Dysphagia [Recovering/Resolving]
  - Joint stiffness [Recovering/Resolving]
  - Dyspnoea [Recovering/Resolving]
  - Hypoaesthesia [Not Recovered/Not Resolved]

NARRATIVE: CASE EVENT DATE: 20210901
